FAERS Safety Report 13378878 (Version 1)
Quarter: 2017Q1

REPORT INFORMATION
  Report Type: Spontaneous
  Country: FR (occurrence: FR)
  Receive Date: 20170328
  Receipt Date: 20170328
  Transmission Date: 20170429
  Serious: Yes (Hospitalization, Other)
  Sender: FDA-Public Use
  Company Number: FR-PFIZER INC-2017124042

PATIENT
  Age: 35 Year
  Sex: Male

DRUGS (4)
  1. XANAX [Suspect]
     Active Substance: ALPRAZOLAM
     Indication: ANXIETY
     Dosage: 4 DF UP TO 5 DF, DAILY
     Route: 048
     Dates: end: 20170220
  2. STILNOX [Suspect]
     Active Substance: ZOLPIDEM TARTRATE
     Indication: SLEEP DISORDER
     Dosage: 2 DF, 1X/DAY
     Route: 048
     Dates: end: 20170220
  3. BACLOFEN. [Concomitant]
     Active Substance: BACLOFEN
     Dosage: 6 DF, DAILY
  4. ZOPICLONE [Suspect]
     Active Substance: ZOPICLONE
     Indication: SLEEP DISORDER
     Dosage: 2 DF, 1X/DAY
     Route: 048
     Dates: end: 20170220

REACTIONS (6)
  - Drug dependence [Unknown]
  - Amnesia [Unknown]
  - Disorientation [Unknown]
  - Drug abuse [Not Recovered/Not Resolved]
  - Confusional state [Unknown]
  - Drug withdrawal convulsions [Recovered/Resolved]

NARRATIVE: CASE EVENT DATE: 20170223
